FAERS Safety Report 11376046 (Version 2)
Quarter: 2015Q3

REPORT INFORMATION
  Report Type: Report from Study
  Country: BE (occurrence: BE)
  Receive Date: 20150813
  Receipt Date: 20150909
  Transmission Date: 20151125
  Serious: Yes (Hospitalization, Other)
  Sender: FDA-Public Use
  Company Number: BE-GILEAD-2015-0161973

PATIENT
  Age: 69 Year
  Sex: Female
  Weight: 55.2 kg

DRUGS (52)
  1. IDELALISIB [Suspect]
     Active Substance: IDELALISIB
     Indication: CHRONIC LYMPHOCYTIC LEUKAEMIA
     Dosage: 100 MG, BID
     Route: 048
     Dates: start: 2015, end: 20150629
  2. RITUXIMAB [Suspect]
     Active Substance: RITUXIMAB
     Indication: CHRONIC LYMPHOCYTIC LEUKAEMIA
     Dosage: 645 MG, CYCLICAL
     Route: 042
     Dates: start: 20150407, end: 20150407
  3. FOLAVIT [Concomitant]
     Route: 048
     Dates: start: 20140827, end: 20150703
  4. BENDAMUSTINE [Suspect]
     Active Substance: BENDAMUSTINE
     Dosage: 155 MG, CYCLICAL
     Route: 042
     Dates: start: 20150309, end: 20150309
  5. BENDAMUSTINE [Suspect]
     Active Substance: BENDAMUSTINE
     Dosage: 155 MG, CYCLICAL
     Route: 042
     Dates: start: 20150310, end: 20150310
  6. RITUXIMAB [Suspect]
     Active Substance: RITUXIMAB
     Dosage: 645 MG, CYCLICAL
     Route: 042
     Dates: start: 20150309, end: 20150309
  7. RITUXIMAB [Suspect]
     Active Substance: RITUXIMAB
     Dosage: 645 MG, CYCLICAL
     Route: 042
     Dates: start: 20150112, end: 20150112
  8. ZOFRAN [Concomitant]
     Active Substance: ONDANSETRON HYDROCHLORIDE
     Indication: PREMEDICATION
     Dosage: UNK
     Route: 042
     Dates: start: 20141117
  9. SERTRALINE [Concomitant]
     Active Substance: SERTRALINE HYDROCHLORIDE
     Indication: DEPRESSION
     Route: 048
  10. BROMAZEPAM [Concomitant]
     Active Substance: BROMAZEPAM
     Route: 048
  11. PARACETAMOL [Concomitant]
     Active Substance: ACETAMINOPHEN
     Indication: PREMEDICATION
     Route: 042
     Dates: start: 20141117
  12. BENDAMUSTINE [Suspect]
     Active Substance: BENDAMUSTINE
     Indication: CHRONIC LYMPHOCYTIC LEUKAEMIA
     Dosage: 155 MG, CYCLICAL
     Route: 042
     Dates: start: 20150408, end: 20150408
  13. DAFALGAN [Concomitant]
     Active Substance: ACETAMINOPHEN
     Indication: BACK PAIN
     Route: 048
     Dates: start: 20150112
  14. ASAFLOW [Concomitant]
     Active Substance: ASPIRIN
     Indication: TRANSIENT ISCHAEMIC ATTACK
     Route: 048
     Dates: start: 20140827
  15. SERTRALINE [Concomitant]
     Active Substance: SERTRALINE HYDROCHLORIDE
     Route: 048
  16. AMOXICILLIN TRIHYDRATE [Concomitant]
     Active Substance: AMOXICILLIN
     Indication: HERPES ZOSTER
     Route: 048
     Dates: start: 20150615, end: 20150619
  17. LIPANTHYLNANO [Concomitant]
     Active Substance: FENOFIBRATE
     Indication: HYPERCHOLESTEROLAEMIA
     Route: 048
     Dates: start: 2013
  18. SOLU-MEDROL [Concomitant]
     Active Substance: METHYLPREDNISOLONE SODIUM SUCCINATE
     Indication: PREMEDICATION
     Route: 042
     Dates: start: 20141117
  19. TAVEGYL [Concomitant]
     Active Substance: CLEMASTINE FUMARATE
     Indication: PREMEDICATION
     Route: 042
     Dates: start: 20141117
  20. BENDAMUSTINE [Suspect]
     Active Substance: BENDAMUSTINE
     Dosage: 155 MG, CYCLICAL
     Route: 042
     Dates: start: 20150209, end: 20150209
  21. BENDAMUSTINE [Suspect]
     Active Substance: BENDAMUSTINE
     Dosage: 155 MG, UNK
     Route: 042
     Dates: start: 20141118, end: 20141118
  22. BROMAZEPAM [Concomitant]
     Active Substance: BROMAZEPAM
     Route: 048
  23. WELLBUTRIN [Concomitant]
     Active Substance: BUPROPION HYDROCHLORIDE
     Route: 048
  24. BENDAMUSTINE [Suspect]
     Active Substance: BENDAMUSTINE
     Dosage: 155 MG, CYCLICAL
     Route: 042
     Dates: start: 20141215, end: 20141215
  25. RITUXIMAB [Suspect]
     Active Substance: RITUXIMAB
     Dosage: 645 MG, CYCLICAL
     Route: 042
     Dates: start: 20141215, end: 20141215
  26. PANTOPRAZOLE [Concomitant]
     Active Substance: PANTOPRAZOLE SODIUM
     Indication: ABDOMINAL PAIN UPPER
     Route: 048
  27. SULPIRIDE [Concomitant]
     Active Substance: SULPIRIDE
     Route: 048
     Dates: start: 20150119, end: 20150703
  28. DIPROSONE [Concomitant]
     Active Substance: BETAMETHASONE DIPROPIONATE
     Indication: HERPES ZOSTER
     Route: 061
     Dates: start: 20150609, end: 20150615
  29. BROMAZEPAM [Concomitant]
     Active Substance: BROMAZEPAM
     Indication: DEPRESSION
     Route: 048
  30. ISOBETADINE [Concomitant]
     Indication: HERPES ZOSTER
     Route: 061
     Dates: start: 20150615
  31. WELLBUTRIN [Concomitant]
     Active Substance: BUPROPION HYDROCHLORIDE
     Indication: DEPRESSION
     Route: 048
  32. IDELALISIB [Suspect]
     Active Substance: IDELALISIB
     Dosage: 150 MG, BID
     Route: 048
     Dates: start: 20141230, end: 20150323
  33. BENDAMUSTINE [Suspect]
     Active Substance: BENDAMUSTINE
     Dosage: 155 MG, CYCLICAL
     Route: 042
     Dates: start: 20141216, end: 20141216
  34. BENDAMUSTINE [Suspect]
     Active Substance: BENDAMUSTINE
     Dosage: 155 MG, CYCLICAL
     Route: 042
     Dates: start: 20150113, end: 20150113
  35. ASAFLOW [Concomitant]
     Active Substance: ASPIRIN
     Route: 048
     Dates: start: 20140827, end: 20150703
  36. FOLAVIT [Concomitant]
     Indication: FOLATE DEFICIENCY
     Route: 048
     Dates: start: 20140827
  37. AUGMENTIN [Concomitant]
     Active Substance: AMOXICILLIN\CLAVULANATE POTASSIUM
     Indication: HERPES ZOSTER
     Route: 048
     Dates: start: 20150615, end: 20150619
  38. IDELALISIB [Suspect]
     Active Substance: IDELALISIB
     Dosage: 150 MG, BID
     Route: 048
     Dates: start: 20141117, end: 20141222
  39. BENDAMUSTINE [Suspect]
     Active Substance: BENDAMUSTINE
     Dosage: 155 MG, CYCLICAL
     Route: 042
     Dates: start: 20141216, end: 20141216
  40. BENDAMUSTINE [Suspect]
     Active Substance: BENDAMUSTINE
     Dosage: 155 MG, CYCLICAL
     Route: 042
     Dates: start: 20150112, end: 20150112
  41. BENDAMUSTINE [Suspect]
     Active Substance: BENDAMUSTINE
     Dosage: 155 MG, UNK
     Route: 042
     Dates: start: 20141117, end: 20141117
  42. RITUXIMAB [Suspect]
     Active Substance: RITUXIMAB
     Dosage: 645 MG, CYCLICAL
     Route: 042
     Dates: start: 20150209, end: 20150209
  43. PANTOPRAZOLE [Concomitant]
     Active Substance: PANTOPRAZOLE SODIUM
     Route: 048
  44. ZOFRAN [Concomitant]
     Active Substance: ONDANSETRON HYDROCHLORIDE
     Indication: NAUSEA
     Route: 048
     Dates: start: 20150115
  45. SULPIRIDE [Concomitant]
     Active Substance: SULPIRIDE
     Indication: DEPRESSION
     Route: 048
     Dates: start: 20150119
  46. SERTRALINE [Concomitant]
     Active Substance: SERTRALINE HYDROCHLORIDE
     Route: 048
     Dates: end: 20150703
  47. ZOVIRAX [Concomitant]
     Active Substance: ACYCLOVIR
     Indication: HERPES ZOSTER
     Route: 048
     Dates: start: 20150615
  48. BENDAMUSTINE [Suspect]
     Active Substance: BENDAMUSTINE
     Dosage: 155 MG, CYCLICAL
     Route: 042
     Dates: start: 20150210, end: 20150210
  49. BENDAMUSTINE [Suspect]
     Active Substance: BENDAMUSTINE
     Dosage: 155 MG, CYCLICAL
     Route: 042
     Dates: start: 20150407, end: 20150407
  50. RITUXIMAB [Suspect]
     Active Substance: RITUXIMAB
     Dosage: 645 MG, UNK
     Route: 042
     Dates: start: 20141117, end: 20141117
  51. PANTOPRAZOLE [Concomitant]
     Active Substance: PANTOPRAZOLE SODIUM
     Route: 048
  52. WELLBUTRIN [Concomitant]
     Active Substance: BUPROPION HYDROCHLORIDE
     Route: 048

REACTIONS (1)
  - Colitis erosive [Recovered/Resolved]

NARRATIVE: CASE EVENT DATE: 20150702
